FAERS Safety Report 6746168-3 (Version None)
Quarter: 2010Q2

REPORT INFORMATION
  Report Type: 
  Country: None (occurrence: None)
  Receive Date: 20100528
  Receipt Date: 20090421
  Transmission Date: 20101027
  Serious: No
  Sender: FDA-Public Use
  Company Number: US-ASTRAZENECA-2009UW10047

PATIENT
  Age: 80 Year
  Sex: Female

DRUGS (10)
  1. PRILOSEC [Suspect]
     Indication: DYSPEPSIA
     Route: 048
  2. PRILOSEC [Suspect]
     Route: 048
  3. NAPROXEN [Concomitant]
  4. LEVOTHYROXINE SODIUM [Concomitant]
  5. ZETIA [Concomitant]
  6. ZOCOR [Concomitant]
  7. TARZAC CREAM [Concomitant]
  8. BENTYL [Concomitant]
  9. TRENTAL [Concomitant]
  10. PLAVIX [Concomitant]

REACTIONS (2)
  - DRUG INEFFECTIVE [None]
  - DYSPEPSIA [None]
